FAERS Safety Report 12933995 (Version 4)
Quarter: 2016Q4

REPORT INFORMATION
  Report Type: Spontaneous
  Country: IL (occurrence: IL)
  Receive Date: 20161111
  Receipt Date: 20161227
  Transmission Date: 20170207
  Serious: Yes (Hospitalization)
  Sender: FDA-Public Use
  Company Number: IL-SA-2016SA200470

PATIENT
  Age: 74 Year
  Sex: Female

DRUGS (5)
  1. LYXUMIA [Suspect]
     Active Substance: LIXISENATIDE
     Dosage: 0,3 MG/3 ML
     Route: 065
     Dates: start: 201604
  2. LANTUS [Suspect]
     Active Substance: INSULIN GLARGINE
     Indication: TYPE 2 DIABETES MELLITUS
     Dosage: DOSE:30 UNIT(S)
     Route: 065
  3. APIDRA [Suspect]
     Active Substance: INSULIN GLULISINE
     Dosage: DOSE:15 UNIT(S)
     Route: 065
  4. LANTUS [Suspect]
     Active Substance: INSULIN GLARGINE
     Indication: TYPE 2 DIABETES MELLITUS
     Dosage: DOSE:33 UNIT(S)
     Route: 065
  5. APIDRA [Suspect]
     Active Substance: INSULIN GLULISINE
     Dosage: DOSE:10 UNIT(S)
     Route: 065

REACTIONS (6)
  - Pulmonary oedema [Unknown]
  - Dyspnoea [Unknown]
  - Arthralgia [Recovering/Resolving]
  - Blood glucose increased [Recovered/Resolved]
  - Ocular hyperaemia [Recovering/Resolving]
  - Cholelithiasis [Unknown]

NARRATIVE: CASE EVENT DATE: 20160902
